FAERS Safety Report 8662274 (Version 2)
Quarter: 2014Q1

REPORT INFORMATION
  Report Type: Report from Study
  Country: US (occurrence: US)
  Receive Date: 20120712
  Receipt Date: 20140113
  Transmission Date: 20141002
  Serious: Yes (Death, Hospitalization)
  Sender: FDA-Public Use
  Company Number: US-ROCHE-1086196

PATIENT
  Age: 70 Year
  Sex: Female

DRUGS (19)
  1. ACTEMRA [Suspect]
     Indication: RHEUMATOID ARTHRITIS
     Route: 042
     Dates: start: 20101210, end: 20110831
  2. METHOTREXATE [Concomitant]
     Route: 065
  3. NEXIUM [Concomitant]
  4. PLAQUENIL [Concomitant]
     Route: 048
  5. PROZAC [Concomitant]
  6. WELLBUTRIN [Concomitant]
     Dosage: MEDICATION AT TIME OF TRANSFER
     Route: 065
  7. RECLAST [Concomitant]
     Dosage: 5MG/100 CUBIC CENTIMETERS
     Route: 065
  8. LEUCOVORIN [Concomitant]
     Dosage: 5 MG WEEKLY AFTER METHOTREXATE
     Route: 065
  9. FOLIC ACID [Concomitant]
  10. FISH OIL [Concomitant]
  11. VITAMIN E [Concomitant]
     Dosage: 1000 UNITS DAILY
     Route: 048
  12. ASMANEX [Concomitant]
     Dosage: 2 INHALATIONS OF 220UG
     Route: 065
  13. FLONASE [Concomitant]
     Dosage: ONE INHALATION  (50UG) DAILY
     Route: 065
  14. RELPAX [Concomitant]
     Route: 048
  15. INDERAL [Concomitant]
  16. SPIRIVA [Concomitant]
     Dosage: ONE INHALATION EVERY MORNING
     Route: 065
  17. TOPAMAX [Concomitant]
     Route: 048
  18. ZYRTEC [Concomitant]
  19. ZOCOR [Concomitant]
     Route: 048

REACTIONS (8)
  - Death [Fatal]
  - Cellulitis [Unknown]
  - Craniocerebral injury [Unknown]
  - Concussion [Unknown]
  - Ataxia [Unknown]
  - Fall [Unknown]
  - Excoriation [Unknown]
  - Oedema peripheral [Unknown]
